FAERS Safety Report 8184512-3 (Version None)
Quarter: 2012Q1

REPORT INFORMATION
  Report Type: 
  Country: None (occurrence: None)
  Receive Date: 20120305
  Receipt Date: 20120229
  Transmission Date: 20120608
  Serious: Yes (Death, Hospitalization)
  Sender: FDA-Public Use
  Company Number: US-GILEAD-2012-0050678

PATIENT
  Sex: Female

DRUGS (8)
  1. LETAIRIS [Suspect]
     Indication: PULMONARY HYPERTENSION
     Dosage: 5 MG, UNK
     Dates: start: 20111014, end: 20111208
  2. COUMADIN [Concomitant]
  3. LEVOTHYROXINE SODIUM [Concomitant]
  4. ALLOPURINOL [Concomitant]
  5. PROAMATINE [Concomitant]
  6. MULTIVITAMIN                       /00097801/ [Concomitant]
  7. ZETIA [Concomitant]
  8. LANTUS [Concomitant]

REACTIONS (4)
  - WEIGHT INCREASED [None]
  - DEATH [None]
  - MYOPATHY [None]
  - RENAL FAILURE CHRONIC [None]
